FAERS Safety Report 12973910 (Version 2)
Quarter: 2016Q4

REPORT INFORMATION
  Report Type: Spontaneous
  Country: JP (occurrence: JP)
  Receive Date: 20161124
  Receipt Date: 20161210
  Transmission Date: 20170207
  Serious: Yes (Hospitalization)
  Sender: FDA-Public Use
  Company Number: JP-AMGEN-JPNSP2016164691

PATIENT
  Age: 94 Year
  Sex: Female
  Weight: 45.8 kg

DRUGS (11)
  1. LUNESTA [Concomitant]
     Active Substance: ESZOPICLONE
     Indication: INSOMNIA
     Dosage: 2 MG, QD
     Route: 048
     Dates: start: 20160905
  2. EDIROL [Suspect]
     Active Substance: ELDECALCITOL
     Indication: OSTEOPOROSIS
     Route: 048
     Dates: start: 20160620, end: 20160810
  3. LYRICA [Concomitant]
     Active Substance: PREGABALIN
     Indication: NEURALGIA
     Dates: start: 20160620, end: 20160810
  4. OPALMON [Concomitant]
     Active Substance: LIMAPROST
     Dosage: 5 MUG, TID
     Route: 048
     Dates: start: 20160620, end: 20160810
  5. TIRADINE [Concomitant]
     Indication: HYPOTHYROIDISM
     Dosage: 50 MUG, QD
     Dates: start: 20160818
  6. EXELON [Concomitant]
     Active Substance: RIVASTIGMINE TARTRATE
     Indication: DEMENTIA ALZHEIMER^S TYPE
     Dosage: 9 MG, QD
     Route: 062
     Dates: start: 20160824, end: 20161005
  7. LANSOPRAZOLE. [Concomitant]
     Active Substance: LANSOPRAZOLE
     Indication: PROPHYLAXIS AGAINST GASTROINTESTINAL ULCER
     Dosage: 15 MG, QD
     Dates: start: 20160620, end: 20160810
  8. PRALIA [Suspect]
     Active Substance: DENOSUMAB
     Indication: OSTEOPOROSIS
     Dosage: 60 MG, Q6MO
     Route: 058
     Dates: start: 20160620, end: 20160620
  9. CALONAL [Concomitant]
     Active Substance: ACETAMINOPHEN
     Dosage: 400 MG, TID
     Route: 048
     Dates: start: 20160620, end: 20160810
  10. FERROMIA [Concomitant]
     Active Substance: FERROUS CITRATE
     Indication: IRON DEFICIENCY ANAEMIA
     Dosage: 50 MG, QD
     Route: 048
     Dates: start: 20160924
  11. VONOPRAZAN [Concomitant]
     Active Substance: VONOPRAZAN
     Indication: GASTRIC ULCER
     Dosage: 10 MG, QD
     Route: 048
     Dates: start: 20160913

REACTIONS (8)
  - Gastric ulcer [Unknown]
  - Delirium [Recovered/Resolved]
  - Restlessness [Recovered/Resolved]
  - Hypothyroidism [Unknown]
  - Dementia [Unknown]
  - Pneumonia aspiration [Unknown]
  - Tremor [Recovering/Resolving]
  - Hypocalcaemia [Recovered/Resolved]

NARRATIVE: CASE EVENT DATE: 20160812
